FAERS Safety Report 22072746 (Version 1)
Quarter: 2023Q1

REPORT INFORMATION
  Report Type: Spontaneous
  Country: US (occurrence: US)
  Receive Date: 20230308
  Receipt Date: 20230308
  Transmission Date: 20230417
  Serious: No
  Sender: FDA-Public Use
  Company Number: US-GLENMARK PHARMACEUTICALS-2022GMK073678

PATIENT

DRUGS (1)
  1. ZONISAMIDE [Suspect]
     Active Substance: ZONISAMIDE
     Indication: Product used for unknown indication
     Dosage: 2 DOSAGE FORM, OD (IN THE EVENING)
     Route: 048

REACTIONS (7)
  - Emotional disorder [Unknown]
  - Recalled product administered [Unknown]
  - Hyperhidrosis [Unknown]
  - Headache [Unknown]
  - Irritability [Unknown]
  - Vomiting [Unknown]
  - Tremor [Unknown]
